FAERS Safety Report 15668471 (Version 2)
Quarter: 2018Q4

REPORT INFORMATION
  Report Type: Spontaneous
  Country: NL (occurrence: NL)
  Receive Date: 20181129
  Receipt Date: 20181213
  Transmission Date: 20190205
  Serious: Yes (Other)
  Sender: FDA-Public Use
  Company Number: NL-TEVA-2018-NL-980297

PATIENT
  Age: 67 Year
  Sex: Male
  Weight: 78 kg

DRUGS (5)
  1. BISOPROLOLFUMARAAT 5 MG [Suspect]
     Active Substance: BISOPROLOL FUMARATE
     Indication: TRANSIENT ISCHAEMIC ATTACK
     Dosage: 5 MILLIGRAM DAILY;
     Route: 048
     Dates: start: 20181029
  2. ELIQUIS [Concomitant]
     Active Substance: APIXABAN
     Route: 048
     Dates: start: 2018
  3. BISOPROLOLFUMARAAT 2.5 MG [Suspect]
     Active Substance: BISOPROLOL FUMARATE
     Indication: TRANSIENT ISCHAEMIC ATTACK
     Dosage: 2.5 MILLIGRAM DAILY;
     Route: 048
     Dates: start: 2017
  4. DOXAZOSIN 4 MG [Concomitant]
     Active Substance: DOXAZOSIN\DOXAZOSIN MESYLATE
     Route: 048
  5. BISOPROLOLFUMARAAT 7,5 MG [Suspect]
     Active Substance: BISOPROLOL FUMARATE
     Indication: TRANSIENT ISCHAEMIC ATTACK
     Dosage: 15 MILLIGRAM DAILY; 1 TIME PER DAY 2 CAPSULES
     Route: 048
     Dates: start: 2018

REACTIONS (3)
  - Renal impairment [Not Recovered/Not Resolved]
  - Muscle spasms [Not Recovered/Not Resolved]
  - Gait disturbance [Unknown]

NARRATIVE: CASE EVENT DATE: 201808
